FAERS Safety Report 8986173 (Version 1)
Quarter: 2012Q4

REPORT INFORMATION
  Report Type: Spontaneous
  Country: US (occurrence: None)
  Receive Date: 20121219
  Receipt Date: 20121219
  Transmission Date: 20130627
  Serious: Yes (Hospitalization)
  Sender: FDA-Public Use
  Company Number: None

PATIENT
  Age: 69 Year
  Sex: Male
  Weight: 92 kg

DRUGS (5)
  1. TERAZOSIN [Suspect]
     Indication: HYPERTENSION
     Dosage: 10 mg bid po
     Route: 048
  2. ATORVASTATIN [Concomitant]
  3. LISINOPRIL [Concomitant]
  4. HCTZ [Concomitant]
  5. IBUPROFEN [Concomitant]

REACTIONS (1)
  - Syncope [None]
